FAERS Safety Report 5114796-7 (Version None)
Quarter: 2006Q3

REPORT INFORMATION
  Report Type: 
  Country: None (occurrence: None)
  Receive Date: 20060922
  Receipt Date: 20060601
  Transmission Date: 20061208
  Serious: Yes (Other)
  Sender: FDA-Public Use
  Company Number: 2006VX000662

PATIENT
  Age: 37 Year
  Sex: Male

DRUGS (3)
  1. INTERFERON ALFACON-1 [Suspect]
     Indication: HEPATITIS C
     Dosage: 15 UG;QD;SC
     Route: 058
     Dates: start: 20060101
  2. RIBAVIRIN [Concomitant]
  3. ZOLOFT [Concomitant]

REACTIONS (3)
  - HALLUCINATION, AUDITORY [None]
  - HOMICIDAL IDEATION [None]
  - SUICIDAL IDEATION [None]
